FAERS Safety Report 8896698 (Version 4)
Quarter: 2013Q3

REPORT INFORMATION
  Report Type: Spontaneous
  Country: US (occurrence: US)
  Receive Date: 20121108
  Receipt Date: 20130708
  Transmission Date: 20140515
  Serious: Yes (Other)
  Sender: FDA-Public Use
  Company Number: US-UCBSA-070347

PATIENT
  Age: 56 Year
  Sex: Female
  Weight: 57.2 kg

DRUGS (1)
  1. CIMZIA [Suspect]
     Indication: CROHN^S DISEASE
     Dates: start: 200903, end: 201210

REACTIONS (1)
  - Herpes zoster [Recovered/Resolved]
